FAERS Safety Report 4652889-9 (Version None)
Quarter: 2005Q2

REPORT INFORMATION
  Report Type: 
  Country: None (occurrence: None)
  Receive Date: 20050502
  Receipt Date: 20050217
  Transmission Date: 20051028
  Serious: Yes (Disabling, Other)
  Sender: FDA-Public Use
  Company Number: 2005066012

PATIENT
  Sex: Male

DRUGS (1)
  1. NEOMYCIN SULFATE [Suspect]
     Indication: ILL-DEFINED DISORDER

REACTIONS (2)
  - DEAFNESS PERMANENT [None]
  - TYMPANIC MEMBRANE DISORDER [None]
